FAERS Safety Report 4942591-8 (Version None)
Quarter: 2006Q1

REPORT INFORMATION
  Report Type: 
  Country: None (occurrence: None)
  Receive Date: 20060308
  Receipt Date: 20060222
  Transmission Date: 20060701
  Serious: Yes (Death)
  Sender: FDA-Public Use
  Company Number: 2006S1000071

PATIENT
  Age: 49 Year
  Sex: Female

DRUGS (8)
  1. CLOZAPINE [Suspect]
     Dosage: SEE IMAGE
     Route: 048
     Dates: start: 20020101
  2. CLOZAPINE [Suspect]
     Dosage: SEE IMAGE
     Route: 048
     Dates: start: 20020101
  3. ESCITALOPRAM OXALATE [Concomitant]
  4. LEVOTHYROXINE SODIUM [Concomitant]
  5. CAFFEINE/BUTALBITAL/PARACETAMOL [Concomitant]
  6. TEMAZEPAM [Concomitant]
  7. TOPIRAMATE [Concomitant]
  8. LORAZEPAM [Concomitant]

REACTIONS (2)
  - BREAST CANCER [None]
  - CARDIOMEGALY [None]
